FAERS Safety Report 17439097 (Version 1)
Quarter: 2020Q1

REPORT INFORMATION
  Report Type: Spontaneous
  Country: US (occurrence: US)
  Receive Date: 20200205
  Receipt Date: 20200205
  Transmission Date: 20200409
  Serious: Yes (Death)
  Sender: FDA-Public Use
  Company Number: None

PATIENT
  Age: 63 Year
  Sex: Female

DRUGS (31)
  1. DEXAMETHASON [Concomitant]
     Active Substance: DEXAMETHASONE
  2. LACTULOSE. [Concomitant]
     Active Substance: LACTULOSE
  3. LORAZEPAM. [Concomitant]
     Active Substance: LORAZEPAM
  4. MAGNESIUM-OX [Concomitant]
  5. VANIQA [Concomitant]
     Active Substance: EFLORNITHINE HYDROCHLORIDE
  6. CANDESARTAN. [Concomitant]
     Active Substance: CANDESARTAN
  7. PROCHLORPER [Concomitant]
  8. IBUPROFEN. [Concomitant]
     Active Substance: IBUPROFEN
  9. MELOXICAM. [Concomitant]
     Active Substance: MELOXICAM
  10. VENLAFAXINE [Concomitant]
     Active Substance: VENLAFAXINE HYDROCHLORIDE
  11. NEUPOGEN [Suspect]
     Active Substance: FILGRASTIM
     Indication: BREAST CANCER FEMALE
     Dosage: ?          OTHER STRENGTH:480MCG/0.8ML;OTHER FREQUENCY:DAILY 5 DAYS;?
     Route: 058
     Dates: start: 201908, end: 201909
  12. DOXEPIN HCL [Concomitant]
     Active Substance: DOXEPIN HYDROCHLORIDE
  13. OMEPRAZOLE. [Concomitant]
     Active Substance: OMEPRAZOLE
  14. CEPHALEXIN. [Concomitant]
     Active Substance: CEPHALEXIN
  15. LIDO/PRILOCN [Concomitant]
  16. OSELTAMIVIR [Concomitant]
     Active Substance: OSELTAMIVIR
  17. PREDNISONE. [Concomitant]
     Active Substance: PREDNISONE
  18. ATORVASTATIN [Concomitant]
     Active Substance: ATORVASTATIN
  19. BENZONATATE. [Concomitant]
     Active Substance: BENZONATATE
  20. HYDROMET [Concomitant]
     Active Substance: HOMATROPINE METHYLBROMIDE\HYDROCODONE BITARTRATE
  21. MUPIROCIN. [Concomitant]
     Active Substance: MUPIROCIN
  22. ONDANSETRON [Concomitant]
     Active Substance: ONDANSETRON
  23. RANITIDINE. [Concomitant]
     Active Substance: RANITIDINE
  24. WIXELA INHUB [Concomitant]
     Active Substance: FLUTICASONE PROPIONATE\SALMETEROL XINAFOATE
  25. POT CHLORIDE [Concomitant]
     Active Substance: POTASSIUM CHLORIDE
  26. HYDROCO/APAP [Concomitant]
     Active Substance: ACETAMINOPHEN\HYDROCODONE
  27. CAPECITABINE. [Concomitant]
     Active Substance: CAPECITABINE
  28. ZOLPIDEM [Concomitant]
     Active Substance: ZOLPIDEM TARTRATE
  29. IPRATROPIUM/SOL ALBUTER [Concomitant]
  30. LEVOTHYROXIN [Concomitant]
     Active Substance: LEVOTHYROXINE
  31. SSD [Concomitant]
     Active Substance: SILVER SULFADIAZINE

REACTIONS (1)
  - Death [None]
